FAERS Safety Report 22098720 (Version 2)
Quarter: 2023Q2

REPORT INFORMATION
  Report Type: Spontaneous
  Country: JP (occurrence: JP)
  Receive Date: 20230315
  Receipt Date: 20230417
  Transmission Date: 20230722
  Serious: Yes (Other)
  Sender: FDA-Public Use
  Company Number: JP-ASTELLAS-2022JP016791

PATIENT
  Age: 73 Year
  Sex: Male

DRUGS (9)
  1. XTANDI [Suspect]
     Active Substance: ENZALUTAMIDE
     Indication: Prostate cancer
     Route: 048
     Dates: start: 20221101, end: 20221115
  2. DEGARELIX [Concomitant]
     Active Substance: DEGARELIX
     Indication: Prostate cancer
     Route: 058
     Dates: start: 20220712
  3. DARATUMUMAB [Concomitant]
     Active Substance: DARATUMUMAB
     Indication: Renal amyloidosis
     Route: 058
     Dates: start: 20221006
  4. VELCADE [Concomitant]
     Active Substance: BORTEZOMIB
     Indication: Renal amyloidosis
     Route: 058
     Dates: start: 20221006
  5. LENADEX [Concomitant]
     Active Substance: DEXAMETHASONE ACETATE
     Indication: Renal amyloidosis
     Route: 048
     Dates: start: 20221007
  6. FLUCONAZOLE [Concomitant]
     Active Substance: FLUCONAZOLE
     Indication: Renal amyloidosis
     Route: 048
     Dates: start: 20221010
  7. CARDENALIN [Concomitant]
     Active Substance: DOXAZOSIN MESYLATE
     Indication: Hypertension
     Route: 048
     Dates: start: 20221012
  8. ACYCLOVIR [Concomitant]
     Active Substance: ACYCLOVIR
     Indication: Renal amyloidosis
     Route: 048
     Dates: start: 20221013
  9. RABEPRAZOLE [Concomitant]
     Active Substance: RABEPRAZOLE
     Indication: Renal amyloidosis
     Route: 048
     Dates: start: 20221020

REACTIONS (2)
  - Loss of consciousness [Recovered/Resolved]
  - Road traffic accident [Recovered/Resolved]

NARRATIVE: CASE EVENT DATE: 20221109
